FAERS Safety Report 9346357 (Version 2)
Quarter: 2013Q2

REPORT INFORMATION
  Report Type: Spontaneous
  Country: US (occurrence: US)
  Receive Date: 20130613
  Receipt Date: 20130627
  Transmission Date: 20140414
  Serious: Yes (Death, Congenital Anomaly)
  Sender: FDA-Public Use
  Company Number: US-MYLANLABS-2013S1012563

PATIENT
  Sex: 0

DRUGS (1)
  1. LEVETIRACETAM TABLETS [Suspect]
     Route: 064

REACTIONS (2)
  - Exposure during pregnancy [Fatal]
  - Anencephaly [Fatal]
